FAERS Safety Report 16671436 (Version 1)
Quarter: 2019Q3

REPORT INFORMATION
  Report Type: Spontaneous
  Country: CH (occurrence: CH)
  Receive Date: 20190806
  Receipt Date: 20190806
  Transmission Date: 20191004
  Serious: Yes (Hospitalization)
  Sender: FDA-Public Use
  Company Number: CH-SCIEGEN PHARMACEUTICALS INC-2019SCILIT00232

PATIENT
  Age: 85 Year
  Sex: Male

DRUGS (9)
  1. ACETYLSALICYLIC ACID [Concomitant]
     Active Substance: ASPIRIN
  2. AMIODARONE [Interacting]
     Active Substance: AMIODARONE
  3. TORASEMIDE [Concomitant]
     Active Substance: TORSEMIDE
  4. SITAGLIPTIN [Concomitant]
     Active Substance: SITAGLIPTIN
  5. DOBUTAMINE [Interacting]
     Active Substance: DOBUTAMINE HYDROCHLORIDE
  6. METOPROLOL. [Concomitant]
     Active Substance: METOPROLOL
  7. SPIRONOLACTONE. [Concomitant]
     Active Substance: SPIRONOLACTONE
  8. ROSUVASTATIN TABLETS [Suspect]
     Active Substance: ROSUVASTATIN
  9. SACUBITRIL/VALSARTAN [Interacting]
     Active Substance: SACUBITRIL\VALSARTAN

REACTIONS (4)
  - Multiple organ dysfunction syndrome [Unknown]
  - Rhabdomyolysis [Recovered/Resolved]
  - Cardiac output decreased [Recovered/Resolved]
  - Drug interaction [Recovered/Resolved]
